FAERS Safety Report 9860968 (Version 1)
Quarter: 2014Q1

REPORT INFORMATION
  Report Type: Spontaneous
  Country: US (occurrence: US)
  Receive Date: 20140202
  Receipt Date: 20140202
  Transmission Date: 20141002
  Serious: No
  Sender: FDA-Public Use
  Company Number: US-ALLERGAN-1302637US

PATIENT
  Age: 32 Year
  Sex: Female

DRUGS (4)
  1. BOTOX COSMETIC [Suspect]
     Indication: SKIN WRINKLING
     Dosage: 35 UNITS, SINGLE
     Route: 030
     Dates: start: 20130214, end: 20130214
  2. BOTOX COSMETIC [Suspect]
     Indication: SKIN WRINKLING
  3. BOTOX COSMETIC [Suspect]
     Indication: SKIN WRINKLING
  4. TOPROL XL [Concomitant]
     Indication: MIGRAINE
     Dosage: 25 MG, UNK
     Route: 048

REACTIONS (4)
  - Sinusitis [Unknown]
  - Sinus disorder [Unknown]
  - Anxiety [Unknown]
  - Dyspnoea [Unknown]
